FAERS Safety Report 19650060 (Version 1)
Quarter: 2021Q3

REPORT INFORMATION
  Report Type: Spontaneous
  Country: US (occurrence: US)
  Receive Date: 20210802
  Receipt Date: 20210802
  Transmission Date: 20211014
  Serious: No
  Sender: FDA-Public Use
  Company Number: US-RVL_PHARMACEUTICALS-USA-POI0573202100256

PATIENT
  Age: 67 Year
  Sex: Female

DRUGS (1)
  1. UPNEEQ [Suspect]
     Active Substance: OXYMETAZOLINE HYDROCHLORIDE
     Indication: EYELID PTOSIS
     Dosage: 3 OR 4 DROPS, OD
     Route: 047
     Dates: start: 20210701, end: 20210701

REACTIONS (3)
  - Photophobia [Recovered/Resolved]
  - Accidental overdose [Recovered/Resolved]
  - Eye pain [Recovered/Resolved]

NARRATIVE: CASE EVENT DATE: 20210701
